FAERS Safety Report 9635356 (Version 1)
Quarter: 2013Q4

REPORT INFORMATION
  Report Type: Spontaneous
  Country: US (occurrence: US)
  Receive Date: 20131021
  Receipt Date: 20131021
  Transmission Date: 20140711
  Serious: No
  Sender: FDA-Public Use
  Company Number: US-PURDUE-USA-2013-0103983

PATIENT
  Age: 68 Year
  Sex: Female

DRUGS (4)
  1. BUTRANS [Suspect]
     Indication: MYOFASCIAL PAIN SYNDROME
     Dosage: 5 MCG/HR, UNK
     Route: 062
     Dates: start: 20130517
  2. BUTRANS [Suspect]
     Indication: PAIN
  3. BUTRANS [Suspect]
     Indication: FIBROMYALGIA
  4. NEURONTIN [Suspect]
     Indication: NEURALGIA
     Dosage: 700 MG, DAILY
     Route: 048

REACTIONS (4)
  - Application site erythema [Not Recovered/Not Resolved]
  - Application site pruritus [Not Recovered/Not Resolved]
  - Application site hypersensitivity [Unknown]
  - Anxiety [Not Recovered/Not Resolved]
